FAERS Safety Report 8433419-2 (Version None)
Quarter: 2012Q2

REPORT INFORMATION
  Report Type: 
  Country: None (occurrence: None)
  Receive Date: 20120613
  Receipt Date: 20120604
  Transmission Date: 20120825
  Serious: No
  Sender: FDA-Public Use
  Company Number: CN-JNJFOC-20120520249

PATIENT

DRUGS (1)
  1. RISPERDAL [Suspect]
     Indication: SCHIZOPHRENIA
     Route: 048

REACTIONS (14)
  - HEPATIC FUNCTION ABNORMAL [None]
  - GALACTORRHOEA [None]
  - INSOMNIA [None]
  - SOMNOLENCE [None]
  - BLOOD PROLACTIN INCREASED [None]
  - TREMOR [None]
  - SEXUAL DYSFUNCTION [None]
  - TACHYCARDIA [None]
  - MENSTRUAL DISORDER [None]
  - FEAR [None]
  - DIZZINESS [None]
  - MUSCLE RIGIDITY [None]
  - EXTRAPYRAMIDAL DISORDER [None]
  - WEIGHT INCREASED [None]
